FAERS Safety Report 24551614 (Version 2)
Quarter: 2024Q4

REPORT INFORMATION
  Report Type: Report from Study
  Country: NL (occurrence: NL)
  Receive Date: 20241026
  Receipt Date: 20241107
  Transmission Date: 20250114
  Serious: Yes (Death)
  Sender: ABBVIE
  Company Number: NL-ABBVIE-5977213

PATIENT
  Age: 9 Month
  Sex: Male

DRUGS (2)
  1. VENETOCLAX [Suspect]
     Active Substance: VENETOCLAX
     Indication: Acute myeloid leukaemia
     Dosage: DURATION TEXT: 14 DAYS
     Route: 048
     Dates: end: 202410
  2. AZACITIDINE [Suspect]
     Active Substance: AZACITIDINE
     Indication: Product used for unknown indication
     Dosage: DURATION TEXT: 7 DAYS
     Route: 065

REACTIONS (1)
  - Acute myeloid leukaemia refractory [Fatal]

NARRATIVE: CASE EVENT DATE: 20241019
